FAERS Safety Report 13264472 (Version 1)
Quarter: 2017Q1

REPORT INFORMATION
  Report Type: Spontaneous
  Country: FR (occurrence: FR)
  Receive Date: 20170223
  Receipt Date: 20170223
  Transmission Date: 20170428
  Serious: Yes (Other)
  Sender: FDA-Public Use
  Company Number: FR-FERRINGPH-2017FE00668

PATIENT

DRUGS (1)
  1. OCTIM [Suspect]
     Active Substance: DESMOPRESSIN ACETATE
     Indication: VON WILLEBRAND^S DISEASE
     Dosage: 10 DROPS IN EACH NOSTRIL
     Route: 045
     Dates: start: 20170118, end: 20170118

REACTIONS (3)
  - Eyelid oedema [Recovered/Resolved]
  - Anuria [Recovered/Resolved]
  - Medication error [Unknown]

NARRATIVE: CASE EVENT DATE: 20170118
